FAERS Safety Report 19526260 (Version 1)
Quarter: 2021Q3

REPORT INFORMATION
  Report Type: Spontaneous
  Country: US (occurrence: US)
  Receive Date: 20210713
  Receipt Date: 20210713
  Transmission Date: 20211014
  Serious: Yes (Hospitalization)
  Sender: FDA-Public Use
  Company Number: None

PATIENT
  Age: 71 Year
  Sex: Female

DRUGS (9)
  1. OMEPRAZOLE. [Concomitant]
     Active Substance: OMEPRAZOLE
  2. LISINOPRIL. [Concomitant]
     Active Substance: LISINOPRIL
  3. DILTIAZEM. [Concomitant]
     Active Substance: DILTIAZEM
  4. VITAMIN D [Concomitant]
     Active Substance: VITAMIN D NOS
  5. ELIQUIS [Concomitant]
     Active Substance: APIXABAN
  6. CLOPIDOGREL [Concomitant]
     Active Substance: CLOPIDOGREL BISULFATE
  7. REPATHA [Suspect]
     Active Substance: EVOLOCUMAB
     Indication: HYPERCHOLESTEROLAEMIA
     Dosage: ?          OTHER FREQUENCY:EVERY TWO WEEKS;?
     Route: 058
     Dates: start: 20200326
  8. ANUCORT [Concomitant]
  9. EZETIMIBE. [Concomitant]
     Active Substance: EZETIMIBE

REACTIONS (2)
  - Muscular weakness [None]
  - Pulmonary thrombosis [None]
